FAERS Safety Report 16261851 (Version 2)
Quarter: 2019Q2

REPORT INFORMATION
  Report Type: Spontaneous
  Country: BE (occurrence: BE)
  Receive Date: 20190501
  Receipt Date: 20190529
  Transmission Date: 20190711
  Serious: Yes (Other)
  Sender: FDA-Public Use
  Company Number: BE-JNJFOC-20190440066

PATIENT
  Age: 79 Year
  Sex: Male
  Weight: 80 kg

DRUGS (9)
  1. XARELTO [Suspect]
     Active Substance: RIVAROXABAN
     Indication: PRODUCT USED FOR UNKNOWN INDICATION
     Route: 048
     Dates: start: 201804
  2. PERINDOPRIL [Concomitant]
     Active Substance: PERINDOPRIL
     Route: 048
  3. DEXPANTHENOL. [Concomitant]
     Active Substance: DEXPANTHENOL
     Route: 048
  4. REMERGON [Concomitant]
     Active Substance: MIRTAZAPINE
     Route: 048
  5. METHOXSALEN. [Suspect]
     Active Substance: METHOXSALEN
     Indication: PUVA
     Route: 048
     Dates: start: 20190318, end: 20190322
  6. ALDACTONE [Concomitant]
     Active Substance: SPIRONOLACTONE
     Route: 048
  7. LIPITOR [Concomitant]
     Active Substance: ATORVASTATIN CALCIUM
     Route: 048
  8. LASIX [Concomitant]
     Active Substance: FUROSEMIDE
     Route: 048
  9. KREDEX [Concomitant]
     Active Substance: CARVEDILOL
     Route: 048

REACTIONS (3)
  - Retinopathy haemorrhagic [Recovered/Resolved with Sequelae]
  - Sudden visual loss [Recovered/Resolved with Sequelae]
  - Maculopathy [Recovered/Resolved with Sequelae]

NARRATIVE: CASE EVENT DATE: 20190322
